FAERS Safety Report 18507598 (Version 1)
Quarter: 2020Q4

REPORT INFORMATION
  Report Type: Spontaneous
  Country: IT (occurrence: IT)
  Receive Date: 20201116
  Receipt Date: 20201116
  Transmission Date: 20210114
  Serious: Yes (Hospitalization)
  Sender: FDA-Public Use
  Company Number: IT-BAYER-2020-239460

PATIENT
  Age: 71 Year
  Sex: Male
  Weight: 78 kg

DRUGS (3)
  1. CARDIOASPIRIN [Concomitant]
     Active Substance: ASPIRIN
     Dosage: 100 MG, UNK
     Route: 048
  2. AMLODIPINA [AMLODIPINE] [Concomitant]
     Active Substance: AMLODIPINE BESYLATE
     Indication: HYPERTENSION
     Dosage: 5 MG, UNK
     Route: 048
  3. STIVARGA [Suspect]
     Active Substance: REGORAFENIB
     Indication: HEPATOCELLULAR CARCINOMA
     Dosage: 90 MG, UNK
     Route: 048
     Dates: start: 20200917, end: 20201007

REACTIONS (2)
  - Anaemia [Recovered/Resolved with Sequelae]
  - Pancytopenia [Recovered/Resolved with Sequelae]

NARRATIVE: CASE EVENT DATE: 20201014
